FAERS Safety Report 13112537 (Version 1)
Quarter: 2017Q1

REPORT INFORMATION
  Report Type: Spontaneous
  Country: US (occurrence: US)
  Receive Date: 20170112
  Receipt Date: 20170112
  Transmission Date: 20170428
  Serious: Yes (Other)
  Sender: FDA-Public Use
  Company Number: None

PATIENT
  Age: 62 Year
  Sex: Female
  Weight: 70.2 kg

DRUGS (9)
  1. LISINOPRIL-HCTZ [Concomitant]
     Active Substance: HYDROCHLOROTHIAZIDE\LISINOPRIL
  2. REPATHA [Suspect]
     Active Substance: EVOLOCUMAB
     Indication: BLOOD CHOLESTEROL INCREASED
     Dosage: ?          QUANTITY:2 INJECTION(S);OTHER FREQUENCY:2X A MONTH;?
     Route: 030
     Dates: start: 20160511, end: 20161010
  3. CLONIDINE. [Concomitant]
     Active Substance: CLONIDINE
  4. PROAIR HFA [Concomitant]
     Active Substance: ALBUTEROL SULFATE
  5. ZEGERID [Concomitant]
     Active Substance: OMEPRAZOLE\SODIUM BICARBONATE
  6. FISH OIL [Concomitant]
     Active Substance: FISH OIL
  7. QUNOL ULTRA COQ10 [Concomitant]
  8. ALLOPURINOL. [Concomitant]
     Active Substance: ALLOPURINOL
  9. THYROID (ARMOUR) [Concomitant]

REACTIONS (3)
  - Gout [None]
  - Arthritis [None]
  - Pain [None]

NARRATIVE: CASE EVENT DATE: 20160601
